FAERS Safety Report 5938357-2 (Version None)
Quarter: 2008Q4

REPORT INFORMATION
  Report Type: 
  Country: None (occurrence: None)
  Receive Date: 20081103
  Receipt Date: 20081029
  Transmission Date: 20090506
  Serious: Yes (Life-Threatening, Hospitalization)
  Sender: FDA-Public Use
  Company Number: FR-BRISTOL-MYERS SQUIBB COMPANY-14386676

PATIENT
  Age: 35 Year
  Sex: Male
  Weight: 83 kg

DRUGS (6)
  1. ERBITUX [Suspect]
     Indication: COLORECTAL CANCER
     Route: 042
     Dates: start: 20070801, end: 20081009
  2. ELOXATIN [Suspect]
     Indication: COLORECTAL CANCER
     Dosage: INITIAL DOSE:05MAY07
     Route: 042
     Dates: start: 20070505, end: 20081009
  3. FLUOROURACIL [Suspect]
     Indication: COLORECTAL CANCER
     Dosage: INITIAL DOSE:05MAY07
     Route: 042
     Dates: start: 20070505, end: 20081009
  4. CAMPTOSAR [Suspect]
     Indication: COLORECTAL CANCER
     Dosage: INITIAL DOSE:04SEP08
     Route: 042
     Dates: start: 20080904, end: 20081009
  5. LEUCOVORIN CALCIUM [Suspect]
     Indication: COLORECTAL CANCER
     Dosage: INITIAL DOSE:05MAY07
     Route: 042
     Dates: start: 20070505, end: 20081009
  6. EMEND [Suspect]
     Indication: VOMITING
     Dosage: INITIAL DOSE:04SEP07
     Route: 042
     Dates: start: 20080904, end: 20081009

REACTIONS (8)
  - COMA [None]
  - COOMBS DIRECT TEST POSITIVE [None]
  - HAEMOLYSIS [None]
  - HAEMOLYTIC ANAEMIA [None]
  - MULTI-ORGAN FAILURE [None]
  - RENAL FAILURE ACUTE [None]
  - SHOCK [None]
  - THROMBOCYTOPENIA [None]
